FAERS Safety Report 4301808-3 (Version None)
Quarter: 2004Q1

REPORT INFORMATION
  Report Type: 
  Country: None (occurrence: None)
  Receive Date: 20040126
  Receipt Date: 20031002
  Transmission Date: 20041129
  Serious: No
  Sender: FDA-Public Use
  Company Number: USA031048933

PATIENT
  Age: 42 Year
  Sex: Female
  Weight: 53 kg

DRUGS (3)
  1. STRATTERA [Suspect]
     Dosage: 80 MG/DAY
     Dates: start: 20030901
  2. DEPAKOTE [Concomitant]
  3. TEGRETOL [Concomitant]

REACTIONS (2)
  - BRADYPHRENIA [None]
  - INSOMNIA [None]
